FAERS Safety Report 8498098 (Version 5)
Quarter: 2012Q4

REPORT INFORMATION
  Report Type: 
  Country: US (occurrence: US)
  Receive Date: 20120406
  Receipt Date: 20121005
  Transmission Date: 20130627
  Serious: No
  Sender: FDA-Public Use
  Company Number: US-GLAXOSMITHKLINE-A0972496A

PATIENT
  Age: 13 Year
  Sex: Female
  Weight: 56 kg

DRUGS (4)
  1. FLOLAN [Suspect]
     Indication: PULMONARY ARTERIAL HYPERTENSION
     Route: 042
     Dates: start: 20101207
  2. FLOLAN [Suspect]
     Indication: PRODUCT USED FOR UNKNOWN INDICATION
     Route: 042
  3. SILDENAFIL [Concomitant]
     Indication: PULMONARY HYPERTENSION
     Dosage: 60MG Three times per day
     Route: 048
  4. BOSENTAN [Concomitant]
     Indication: PULMONARY HYPERTENSION
     Dosage: 125MG Twice per day
     Route: 048

REACTIONS (6)
  - Presyncope [Recovered/Resolved]
  - Medical device complication [Unknown]
  - Dyspnoea [Unknown]
  - Dizziness [Unknown]
  - Treatment noncompliance [Unknown]
  - Medical device complication [Unknown]
